FAERS Safety Report 5974805-X (Version None)
Quarter: 2008Q4

REPORT INFORMATION
  Report Type: 
  Country: None (occurrence: None)
  Receive Date: 20081201
  Receipt Date: 20081126
  Transmission Date: 20090506
  Serious: Yes (Other)
  Sender: FDA-Public Use
  Company Number: BR-PFIZER INC-2008100457

PATIENT

DRUGS (1)
  1. DETROL LA [Suspect]
     Indication: HYPERTONIC BLADDER

REACTIONS (3)
  - HYPOTENSION [None]
  - MALAISE [None]
  - STEVENS-JOHNSON SYNDROME [None]
